FAERS Safety Report 7499388-7 (Version None)
Quarter: 2011Q2

REPORT INFORMATION
  Report Type: 
  Country: None (occurrence: None)
  Receive Date: 20110524
  Receipt Date: 20110511
  Transmission Date: 20111010
  Serious: Yes (Other)
  Sender: FDA-Public Use
  Company Number: US-BAYER-2011-041505

PATIENT
  Sex: Female

DRUGS (5)
  1. ATENOLOL [Concomitant]
     Dosage: 25 MG, QD
  2. NEXAVAR [Suspect]
     Indication: GASTROINTESTINAL CARCINOMA
     Dosage: 400 MG, BID
     Route: 048
     Dates: start: 20110413, end: 20110511
  3. MEGESTROL ACETATE [Concomitant]
     Dosage: TWICE DAILY
  4. NEXAVAR [Suspect]
     Indication: LUNG NEOPLASM MALIGNANT
  5. ASPIRIN [Concomitant]
     Dosage: 81 MG, QD
     Dates: start: 20110413

REACTIONS (10)
  - GLOSSODYNIA [None]
  - HAEMATOCHEZIA [None]
  - CONSTIPATION [None]
  - VOMITING [None]
  - NAUSEA [None]
  - TONGUE BLISTERING [None]
  - FATIGUE [None]
  - ABDOMINAL PAIN UPPER [None]
  - DECREASED APPETITE [None]
  - ANORECTAL DISORDER [None]
